FAERS Safety Report 8259487-9 (Version None)
Quarter: 2012Q2

REPORT INFORMATION
  Report Type: 
  Country: None (occurrence: None)
  Receive Date: 20120404
  Receipt Date: 20120328
  Transmission Date: 20120825
  Serious: Yes (Other)
  Sender: FDA-Public Use
  Company Number: US-BAYER-2012-030533

PATIENT
  Age: 56 Year
  Sex: Female

DRUGS (2)
  1. BETAPACE AF [Suspect]
     Indication: VENTRICULAR ARRHYTHMIA
     Dosage: 80 MG, DAILY
     Route: 048
  2. BETAPACE [Suspect]
     Indication: VENTRICULAR ARRHYTHMIA

REACTIONS (2)
  - ARRHYTHMIA [None]
  - MUSCLE SPASMS [None]
